FAERS Safety Report 4971636-4 (Version None)
Quarter: 2006Q2

REPORT INFORMATION
  Report Type: 
  Country: None (occurrence: None)
  Receive Date: 20060407
  Receipt Date: 20060321
  Transmission Date: 20061013
  Serious: Yes (Disabling)
  Sender: FDA-Public Use
  Company Number: 34355

PATIENT
  Sex: Male

DRUGS (1)
  1. ALCAINE [Suspect]

REACTIONS (2)
  - EMOTIONAL DISTRESS [None]
  - PAIN [None]
